FAERS Safety Report 4364795-8 (Version None)
Quarter: 2004Q2

REPORT INFORMATION
  Report Type: 
  Country: None (occurrence: None)
  Receive Date: 20040521
  Receipt Date: 20040429
  Transmission Date: 20050107
  Serious: Yes (Hospitalization)
  Sender: FDA-Public Use
  Company Number: USA040466296

PATIENT
  Age: 58 Year
  Sex: Male
  Weight: 87 kg

DRUGS (6)
  1. ZYPREXA [Suspect]
     Indication: BIPOLAR DISORDER
     Dosage: 15 MG/1 AT BEDTIME
     Dates: start: 20030101
  2. ZYPREXA [Suspect]
     Indication: PSYCHOTIC DISORDER
     Dosage: 15 MG/1 AT BEDTIME
     Dates: start: 20030101
  3. ZYPREXA [Suspect]
     Indication: SCHIZOAFFECTIVE DISORDER
     Dosage: 15 MG/1 AT BEDTIME
     Dates: start: 20030101
  4. DEPAKOTE [Concomitant]
  5. LISINOPRIL [Concomitant]
  6. LOPRESSOR [Concomitant]

REACTIONS (6)
  - HALLUCINATION, AUDITORY [None]
  - HALLUCINATION, VISUAL [None]
  - HYPOMANIA [None]
  - PARANOIA [None]
  - PSYCHOTIC DISORDER [None]
  - TREATMENT NONCOMPLIANCE [None]
